FAERS Safety Report 13097215 (Version 1)
Quarter: 2017Q1

REPORT INFORMATION
  Report Type: Spontaneous
  Country: US (occurrence: US)
  Receive Date: 20170106
  Receipt Date: 20170106
  Transmission Date: 20170428
  Serious: Yes (Death)
  Sender: FDA-Public Use
  Company Number: None

PATIENT
  Age: 81 Year
  Sex: Female
  Weight: 53.12 kg

DRUGS (1)
  1. SIMPONI [Suspect]
     Active Substance: GOLIMUMAB
     Indication: PRODUCT USED FOR UNKNOWN INDICATION
     Dosage: 50MG 1 EVERY 28 DAYS SUBCUTANEOUSLY
     Route: 058
     Dates: start: 20161018, end: 20161211

REACTIONS (2)
  - Death [None]
  - Somnolence [None]

NARRATIVE: CASE EVENT DATE: 20161211
